FAERS Safety Report 8411396 (Version 5)
Quarter: 2012Q4

REPORT INFORMATION
  Report Type: 
  Country: JP (occurrence: JP)
  Receive Date: 20120217
  Receipt Date: 20121019
  Transmission Date: 20130627
  Serious: Yes (Other)
  Sender: FDA-Public Use
  Company Number: JP-ROCHE-1040501

PATIENT
  Age: 70 Year
  Sex: Male

DRUGS (5)
  1. RANIBIZUMAB [Suspect]
     Indication: AGE-RELATED MACULAR DEGENERATION
     Route: 050
     Dates: start: 20101018
  2. RANIBIZUMAB [Suspect]
     Route: 050
     Dates: start: 20101115
  3. RANIBIZUMAB [Suspect]
     Route: 050
     Dates: start: 20101213
  4. BAYASPIRIN [Concomitant]
  5. GATIFLOXACIN [Concomitant]
     Route: 065
     Dates: start: 201010, end: 201012

REACTIONS (2)
  - Retinal haemorrhage [Recovering/Resolving]
  - Visual acuity reduced [Unknown]
